FAERS Safety Report 14987259 (Version 14)
Quarter: 2020Q4

REPORT INFORMATION
  Report Type: Report from Study
  Country: FR (occurrence: FR)
  Receive Date: 20180608
  Receipt Date: 20201101
  Transmission Date: 20210113
  Serious: Yes (Disabling)
  Sender: FDA-Public Use
  Company Number: FR-ROCHE-2134765

PATIENT
  Age: 46 Year
  Sex: Male
  Weight: 58 kg

DRUGS (10)
  1. TIORFAN [Concomitant]
     Active Substance: RACECADOTRIL
     Indication: DIARRHOEA
     Route: 048
     Dates: start: 20180222
  2. KARDEGIC [Concomitant]
     Active Substance: ASPIRIN DL-LYSINE
     Dates: start: 20180615
  3. ATORVASTATINE [Concomitant]
     Active Substance: ATORVASTATIN
     Dates: start: 20180615
  4. SMECTA [Concomitant]
     Active Substance: MONTMORILLONITE
     Indication: DIARRHOEA
     Route: 048
     Dates: start: 20180222
  5. DEXERYL (FRANCE) [Concomitant]
     Active Substance: GLYCERIN\MINERAL OIL\PETROLATUM
     Indication: ERYTHEMA
     Route: 061
     Dates: start: 20180309
  6. COBIMETINIB. [Suspect]
     Active Substance: COBIMETINIB
     Indication: MALIGNANT MELANOMA
     Dosage: MOST RECENT DOSE OF COBIMETINIB: 15/DEC/2017?MOST RECENT DOSE OF COBIMETINIB: 02/JAN/2018?MOST RECEN
     Route: 048
     Dates: start: 20171213
  7. COVERAM [Concomitant]
     Active Substance: AMLODIPINE\PERINDOPRIL
     Route: 048
     Dates: start: 20180406
  8. PLACEBO [Suspect]
     Active Substance: UNSPECIFIED INGREDIENT
     Indication: MALIGNANT MELANOMA
     Dosage: MOST RECENT DOSE OF PLACEBO (ONCE PER 2 WEEKS): 18/MAY/2018
     Route: 042
     Dates: start: 20180112
  9. VEMURAFENIB. [Suspect]
     Active Substance: VEMURAFENIB
     Indication: MALIGNANT MELANOMA
     Dosage: MOST RECENT DOSE OF VEMURAFENIB: 15/DEC/2017?MOST RECENT DOSE OF VEMURAFENIB: 11/JAN/2018?MOST RECEN
     Route: 048
     Dates: start: 20171213
  10. PERINDOPRIL [Concomitant]
     Active Substance: PERINDOPRIL
     Indication: HYPERTENSION
     Route: 048
     Dates: start: 20180219

REACTIONS (4)
  - Atheroembolism [Recovered/Resolved]
  - Diarrhoea [Recovered/Resolved]
  - Serous retinal detachment [Recovered/Resolved]
  - Visual field defect [Recovered/Resolved]

NARRATIVE: CASE EVENT DATE: 20171216
